FAERS Safety Report 4346000-1 (Version None)
Quarter: 2004Q2

REPORT INFORMATION
  Report Type: 
  Country: None (occurrence: None)
  Receive Date: 20040426
  Receipt Date: 20040417
  Transmission Date: 20050107
  Serious: Yes (Hospitalization)
  Sender: FDA-Public Use
  Company Number: PHBS2004BR05290

PATIENT
  Age: 73 Year
  Sex: Female
  Weight: 85 kg

DRUGS (2)
  1. TEGRETOL [Suspect]
     Indication: HERPES VIRUS INFECTION
     Dosage: 1 DF, QD
     Route: 048
  2. ACYCLOVIR [Concomitant]
     Indication: HERPES VIRUS INFECTION
     Dosage: 1 TABLET, Q8H
     Route: 048

REACTIONS (3)
  - CONVULSION [None]
  - DIFFICULTY IN WALKING [None]
  - DIZZINESS [None]
